FAERS Safety Report 11409285 (Version 1)
Quarter: 2015Q3

REPORT INFORMATION
  Report Type: Spontaneous
  Country: US (occurrence: None)
  Receive Date: 20150820
  Receipt Date: 20150820
  Transmission Date: 20151125
  Serious: No
  Sender: FDA-Public Use
  Company Number: None

PATIENT
  Age: 60 Year
  Sex: Female
  Weight: 58.97 kg

DRUGS (18)
  1. NUTRA-GLOW SKIN FORMULAT VITAMINS BECAUSE OF LLC [Suspect]
     Active Substance: DIETARY SUPPLEMENT
     Indication: ECZEMA
     Dates: start: 20140731, end: 20140901
  2. COMBIVENT [Concomitant]
     Active Substance: ALBUTEROL SULFATE\IPRATROPIUM BROMIDE
  3. POTASSIUM [Concomitant]
     Active Substance: POTASSIUM
  4. BIOTIN [Concomitant]
     Active Substance: BIOTIN
  5. RANITIDINE [Concomitant]
     Active Substance: RANITIDINE\RANITIDINE HYDROCHLORIDE
  6. AMITRIPTYLENE [Concomitant]
     Active Substance: AMITRIPTYLINE
  7. MAGNESIUM [Concomitant]
     Active Substance: MAGNESIUM
  8. FLONASE [Concomitant]
     Active Substance: FLUTICASONE PROPIONATE
  9. QUINAPRIL [Concomitant]
     Active Substance: QUINAPRIL\QUINAPRIL HYDROCHLORIDE
  10. VITAMIN E [Concomitant]
     Active Substance: .ALPHA.-TOCOPHEROL
  11. FISH OIL [Concomitant]
     Active Substance: FISH OIL
  12. COLLAGEN [Concomitant]
     Active Substance: COLLAGEN
  13. CALCIUM [Concomitant]
     Active Substance: CALCIUM
  14. KERATIN [Concomitant]
     Active Substance: KERATIN
  15. ADVANCED MULTI-VITA-MIN-AMINO VITAMINS BECAUSE LLC [Suspect]
     Active Substance: AMINO ACIDS\MINERALS\VITAMINS
     Indication: ECZEMA
     Dates: start: 20140731, end: 20140901
  16. PRENATAL MULTI-VITAMIN [Concomitant]
  17. THC [Suspect]
     Active Substance: DRONABINOL
  18. ADVANCED MULTI-VITA-MIN-AMINO VITAMINS BECAUSE LLC [Suspect]
     Active Substance: AMINO ACIDS\MINERALS\VITAMINS
     Indication: HAIR DISORDER
     Dates: start: 20140731, end: 20140901

REACTIONS (2)
  - Laboratory test abnormal [None]
  - Product formulation issue [None]

NARRATIVE: CASE EVENT DATE: 20150804
